FAERS Safety Report 9136838 (Version 2)
Quarter: 2013Q2

REPORT INFORMATION
  Report Type: Spontaneous
  Country: SE (occurrence: SE)
  Receive Date: 20130304
  Receipt Date: 20130404
  Transmission Date: 20140414
  Serious: Yes (Hospitalization)
  Sender: FDA-Public Use
  Company Number: SE-ASTRAZENECA-2013SE12146

PATIENT
  Age: 29304 Day
  Sex: Female

DRUGS (6)
  1. ATACAND [Suspect]
     Indication: HYPERTENSION
     Route: 048
  2. SPIRONOLAKTON [Suspect]
     Indication: HYPERTENSION
     Route: 065
  3. OMEPRAZOLE [Concomitant]
     Route: 048
  4. SIMVASTATIN [Concomitant]
  5. FURIX [Concomitant]
  6. SELOKEN ZOC [Concomitant]
     Route: 048

REACTIONS (5)
  - Depressed level of consciousness [Unknown]
  - Syncope [Unknown]
  - Dehydration [Unknown]
  - Anaemia [Unknown]
  - Troponin increased [Unknown]
